FAERS Safety Report 8276337-5 (Version None)
Quarter: 2012Q2

REPORT INFORMATION
  Report Type: 
  Country: None (occurrence: None)
  Receive Date: 20120412
  Receipt Date: 20120402
  Transmission Date: 20120825
  Serious: Yes (Death, Hospitalization)
  Sender: FDA-Public Use
  Company Number: JP-ASTRAZENECA-2012SE23016

PATIENT
  Age: 87 Year
  Sex: Female

DRUGS (7)
  1. DANAZOL [Interacting]
     Indication: PRODUCT USED FOR UNKNOWN INDICATION
     Route: 048
     Dates: start: 20111224, end: 20120118
  2. SIMVASTATIN [Interacting]
     Indication: DYSLIPIDAEMIA
     Route: 048
     Dates: start: 20000101, end: 20120121
  3. ALLOPURINOL [Concomitant]
     Route: 048
     Dates: start: 20111224, end: 20120118
  4. CANDESARTAN CILEXETIL [Interacting]
     Indication: HYPERTENSION
     Route: 048
     Dates: start: 20000101, end: 20120122
  5. NEBIVOLOL HCL [Concomitant]
     Indication: HYPERTENSION
     Route: 065
     Dates: start: 20050101
  6. LASIX [Suspect]
     Indication: HYPERTENSION
     Route: 065
     Dates: start: 20050101, end: 20120122
  7. ALLOPURINOL [Concomitant]
     Indication: HYPERURICAEMIA
     Route: 065
     Dates: start: 20000101

REACTIONS (3)
  - RENAL FAILURE ACUTE [None]
  - DRUG INTERACTION [None]
  - RHABDOMYOLYSIS [None]
